FAERS Safety Report 7228394-2 (Version None)
Quarter: 2011Q1

REPORT INFORMATION
  Report Type: 
  Country: None (occurrence: None)
  Receive Date: 20110114
  Receipt Date: 20110106
  Transmission Date: 20110831
  Serious: Yes (Other)
  Sender: FDA-Public Use
  Company Number: US-PURDUE-USA-2010-0057979

PATIENT
  Sex: Male

DRUGS (1)
  1. OXYCONTIN [Suspect]
     Indication: PAIN
     Dosage: 40 MG, TID
     Route: 048
     Dates: start: 20101206

REACTIONS (4)
  - DRUG INEFFECTIVE [None]
  - CONSTIPATION [None]
  - INADEQUATE ANALGESIA [None]
  - DYSENTERY [None]
